FAERS Safety Report 22394874 (Version 1)
Quarter: 2023Q2

REPORT INFORMATION
  Report Type: Spontaneous
  Country: US (occurrence: None)
  Receive Date: 20230531
  Receipt Date: 20230531
  Transmission Date: 20230721
  Serious: No
  Sender: FDA-Public Use
  Company Number: None

PATIENT
  Sex: Female

DRUGS (3)
  1. RASUVO [Suspect]
     Active Substance: METHOTREXATE SODIUM
     Dosage: 20MG ONCE EVERY WEEK SQ
     Route: 058
     Dates: start: 202302
  2. KEVZARA [Suspect]
     Active Substance: SARILUMAB
  3. ORENCIA [Suspect]
     Active Substance: ABATACEPT

REACTIONS (2)
  - Therapy non-responder [None]
  - Lacrimation increased [None]
